FAERS Safety Report 7263414-0 (Version None)
Quarter: 2011Q1

REPORT INFORMATION
  Report Type: 
  Country: None (occurrence: None)
  Receive Date: 20110130
  Receipt Date: 20101201
  Transmission Date: 20110831
  Serious: Yes (Other)
  Sender: FDA-Public Use
  Company Number: US-ABBOTT-10P-163-0689324-00

PATIENT
  Age: 61 Year
  Sex: Male

DRUGS (11)
  1. HUMIRA [Suspect]
     Indication: RHEUMATOID ARTHRITIS
     Dates: start: 20020901
  2. FLEXERIL [Concomitant]
     Indication: PAIN
  3. IMITREX [Concomitant]
     Indication: MIGRAINE
  4. METHOTREXATE [Concomitant]
     Indication: RHEUMATOID ARTHRITIS
  5. PLAQUENIL [Concomitant]
     Indication: RHEUMATOID ARTHRITIS
  6. TRAZODONE [Concomitant]
     Indication: PRODUCT USED FOR UNKNOWN INDICATION
  7. SUDAFED 12 HOUR [Concomitant]
     Indication: SEASONAL ALLERGY
  8. WELLBUTRIN [Concomitant]
     Indication: DEPRESSION
  9. FOLIC ACID [Concomitant]
     Indication: ALOPECIA
  10. PREDNISONE [Concomitant]
     Indication: RHEUMATOID ARTHRITIS
  11. DARVOCET-N 100 [Concomitant]
     Indication: PAIN

REACTIONS (2)
  - INJECTION SITE PAPULE [None]
  - LIMB OPERATION [None]
